FAERS Safety Report 9822418 (Version 3)
Quarter: 2014Q1

REPORT INFORMATION
  Report Type: Spontaneous
  Country: PT (occurrence: PT)
  Receive Date: 20140116
  Receipt Date: 20140306
  Transmission Date: 20141002
  Serious: Yes (Other)
  Sender: FDA-Public Use
  Company Number: PT-BAXTER-2014BAX000813

PATIENT
  Age: 10 Year
  Sex: Male
  Weight: 32 kg

DRUGS (4)
  1. ADVATE - 500 IU/VIAL_POWDER FOR SOLUTION FOR INJECTION_ VIAL, GLASS [Suspect]
     Indication: LIMB INJURY
     Route: 042
     Dates: start: 20140105, end: 20140105
  2. ADVATE - 500 IU/VIAL_POWDER FOR SOLUTION FOR INJECTION_ VIAL, GLASS [Suspect]
     Indication: FACTOR VIII DEFICIENCY
  3. ADVATE - 500 IU/VIAL_POWDER FOR SOLUTION FOR INJECTION_ VIAL, GLASS [Suspect]
     Indication: HAEMOPHILIA
  4. ADVATE - 250 IU/VIAL_POWDER FOR SOLUTION FOR INJECTION_VIAL, GLASS [Concomitant]
     Indication: FACTOR VIII DEFICIENCY
     Dates: start: 2008, end: 2008

REACTIONS (6)
  - Rash generalised [Recovered/Resolved]
  - Anaphylactic reaction [Recovered/Resolved]
  - Odynophagia [Recovered/Resolved]
  - Cough [Recovered/Resolved]
  - Dizziness [Recovered/Resolved]
  - Nausea [Recovered/Resolved]
